FAERS Safety Report 15158707 (Version 1)
Quarter: 2018Q3

REPORT INFORMATION
  Report Type: Spontaneous
  Country: US (occurrence: US)
  Receive Date: 20180718
  Receipt Date: 20180718
  Transmission Date: 20181010
  Serious: No
  Sender: FDA-Public Use
  Company Number: US-SA-2018SA171507

PATIENT

DRUGS (1)
  1. ARAVA [Suspect]
     Active Substance: LEFLUNOMIDE
     Dosage: UNK UNK, UNK

REACTIONS (6)
  - Malaise [Unknown]
  - Nausea [Unknown]
  - Pustular psoriasis [Unknown]
  - Headache [Unknown]
  - Liver function test abnormal [Unknown]
  - Abdominal discomfort [Unknown]
